FAERS Safety Report 5078240-0 (Version None)
Quarter: 2006Q3

REPORT INFORMATION
  Report Type: 
  Country: None (occurrence: None)
  Receive Date: 20060811
  Receipt Date: 20041020
  Transmission Date: 20061208
  Serious: Yes (Disabling)
  Sender: FDA-Public Use
  Company Number: US-ROCHE-384009

PATIENT
  Age: 54 Year
  Sex: Female
  Weight: 73.9 kg

DRUGS (5)
  1. PEGASYS [Suspect]
     Indication: HEPATITIS C
     Route: 058
     Dates: start: 20040507
  2. COPEGUS [Suspect]
     Indication: HEPATITIS C
     Route: 048
     Dates: start: 20040507
  3. TOPAMAX [Suspect]
     Indication: HEADACHE
     Route: 048
     Dates: start: 20040815
  4. ZANAFLEX [Suspect]
     Indication: MYALGIA
     Route: 048
     Dates: start: 20040815
  5. FLOMAX [Concomitant]

REACTIONS (6)
  - DIPLOPIA [None]
  - DIZZINESS [None]
  - INNER EAR DISORDER [None]
  - NYSTAGMUS [None]
  - VERTIGO [None]
  - VIIITH NERVE LESION [None]
